FAERS Safety Report 6601164-1 (Version None)
Quarter: 2010Q1

REPORT INFORMATION
  Report Type: 
  Country: None (occurrence: None)
  Receive Date: 20100217
  Receipt Date: 20100125
  Transmission Date: 20100710
  Serious: Yes (Death)
  Sender: FDA-Public Use
  Company Number: 1000005251

PATIENT
  Age: 56 Year
  Sex: Male
  Weight: 74 kg

DRUGS (9)
  1. CITALOPRAM (CITALOPRAM HYDROBROMIDE) (20 MILLIGRAM, TABLETS) [Suspect]
     Indication: DEPRESSION
     Dosage: 20 MG (20 MG, 1 IN 1 D),ORAL;  40 MG (40 MG, 1 IN 1 D), ORAL
     Route: 048
     Dates: start: 20090102, end: 20090115
  2. CITALOPRAM (CITALOPRAM HYDROBROMIDE) (20 MILLIGRAM, TABLETS) [Suspect]
     Indication: DEPRESSION
     Dosage: 20 MG (20 MG, 1 IN 1 D),ORAL;  40 MG (40 MG, 1 IN 1 D), ORAL
     Route: 048
     Dates: start: 20090116
  3. ATENOLOL [Concomitant]
  4. DIGOXIN [Concomitant]
  5. PERINDOPRIL [Concomitant]
  6. WARFARIN SODIUM [Concomitant]
  7. DIAZEPAM [Concomitant]
  8. TEMAZEPAM [Concomitant]
  9. ZOLPIDEM [Concomitant]

REACTIONS (5)
  - ANXIETY [None]
  - COMPLETED SUICIDE [None]
  - DEPRESSED MOOD [None]
  - PARAESTHESIA [None]
  - POOR QUALITY SLEEP [None]
